FAERS Safety Report 17693740 (Version 1)
Quarter: 2020Q2

REPORT INFORMATION
  Report Type: Spontaneous
  Country: US (occurrence: US)
  Receive Date: 20200422
  Receipt Date: 20200422
  Transmission Date: 20200714
  Serious: No
  Sender: FDA-Public Use
  Company Number: None

PATIENT
  Age: 77 Year
  Sex: Female
  Weight: 5.94 kg

DRUGS (3)
  1. IBRANCE 100MG ORAL [Concomitant]
     Dates: start: 20190828, end: 20190920
  2. IBRANCE 125MG ORAL [Concomitant]
     Dates: start: 20190709, end: 20190826
  3. IBRANCE [Suspect]
     Active Substance: PALBOCICLIB
     Indication: BREAST CANCER
     Route: 048
     Dates: start: 20190920, end: 20200422

REACTIONS (1)
  - Death [None]

NARRATIVE: CASE EVENT DATE: 20200422
